FAERS Safety Report 23777853 (Version 1)
Quarter: 2024Q2

REPORT INFORMATION
  Report Type: Spontaneous
  Country: US (occurrence: US)
  Receive Date: 20240424
  Receipt Date: 20240424
  Transmission Date: 20240716
  Serious: Yes (Hospitalization)
  Sender: FDA-Public Use
  Company Number: US-MYLANLABS-2024M1036696

PATIENT
  Age: 55 Year
  Sex: Male

DRUGS (2)
  1. HEPARIN [Suspect]
     Active Substance: HEPARIN SODIUM
     Indication: Prosthetic cardiac valve thrombosis
     Dosage: UNK,  INFUSION
     Route: 065
  2. WARFARIN [Suspect]
     Active Substance: WARFARIN
     Indication: Prosthetic cardiac valve thrombosis
     Dosage: UNK
     Route: 065

REACTIONS (1)
  - Drug ineffective [Unknown]
